FAERS Safety Report 19227333 (Version 1)
Quarter: 2021Q2

REPORT INFORMATION
  Report Type: Spontaneous
  Country: US (occurrence: US)
  Receive Date: 20210507
  Receipt Date: 20210507
  Transmission Date: 20210717
  Serious: No
  Sender: FDA-Public Use
  Company Number: US-ASTRAZENECA-2021A313927

PATIENT
  Sex: Female

DRUGS (1)
  1. BYDUREON [Suspect]
     Active Substance: EXENATIDE
     Route: 058

REACTIONS (6)
  - Device malfunction [Unknown]
  - Device leakage [Unknown]
  - Product use issue [Unknown]
  - Drug dose omission by device [Unknown]
  - Weight decreased [Unknown]
  - Wrong technique in device usage process [Unknown]
